FAERS Safety Report 11635639 (Version 2)
Quarter: 2015Q4

REPORT INFORMATION
  Report Type: Spontaneous
  Country: US (occurrence: US)
  Receive Date: 20151016
  Receipt Date: 20151118
  Transmission Date: 20160304
  Serious: No
  Sender: FDA-Public Use
  Company Number: US-PFIZER INC-2015342398

PATIENT
  Sex: Female

DRUGS (6)
  1. LEVOTHYROXINE. [Concomitant]
     Active Substance: LEVOTHYROXINE
     Indication: BLOOD THYROID STIMULATING HORMONE ABNORMAL
     Dosage: 150 ?G, UNK
  2. CLINDESSE [Concomitant]
     Active Substance: CLINDAMYCIN PHOSPHATE
     Indication: MENOPAUSAL SYMPTOMS
     Dosage: UNK (2%)
  3. FEMPHASCYL [Concomitant]
     Indication: MENOPAUSAL SYMPTOMS
     Dosage: UNK
  4. VIVELLE-DOT [Concomitant]
     Active Substance: ESTRADIOL
     Indication: MENOPAUSAL SYMPTOMS
     Dosage: 0.1 MG, UNK
  5. CYTOMEL [Concomitant]
     Active Substance: LIOTHYRONINE SODIUM
     Indication: HYPOTHYROIDISM
     Dosage: 5 ?G, UNK
  6. CORTEF [Suspect]
     Active Substance: HYDROCORTISONE
     Dosage: 10 MG, 4X/DAY (1-2 IN THE MORNING, 1-2 AT NOON, 1 AFTER, 1 AT BEDTIME)

REACTIONS (3)
  - Product quality issue [Unknown]
  - Oral discomfort [Unknown]
  - Dry mouth [Unknown]

NARRATIVE: CASE EVENT DATE: 20151010
